FAERS Safety Report 4789805-5 (Version None)
Quarter: 2005Q4

REPORT INFORMATION
  Report Type: 
  Country: None (occurrence: None)
  Receive Date: 20051006
  Receipt Date: 20050928
  Transmission Date: 20060501
  Serious: Yes (Hospitalization)
  Sender: FDA-Public Use
  Company Number: 2005-0008678

PATIENT
  Age: 34 Year
  Sex: Male

DRUGS (2)
  1. COMBIVIR [Suspect]
     Indication: HIV INFECTION
     Dosage: 2U PER DAY
     Route: 048
     Dates: start: 20020201
  2. EFAVIRENZ [Suspect]
     Indication: HIV INFECTION
     Dosage: 600MG PER DAY
     Dates: start: 20020201

REACTIONS (8)
  - DECREASED APPETITE [None]
  - FEELING COLD [None]
  - HEADACHE [None]
  - HEPATITIS VIRAL [None]
  - HOT FLUSH [None]
  - LETHARGY [None]
  - NIGHT SWEATS [None]
  - PAIN [None]
